FAERS Safety Report 15678284 (Version 2)
Quarter: 2018Q4

REPORT INFORMATION
  Report Type: Spontaneous
  Country: ES (occurrence: ES)
  Receive Date: 20181201
  Receipt Date: 20181203
  Transmission Date: 20190205
  Serious: Yes (Other)
  Sender: FDA-Public Use
  Company Number: ES-HETERO CORPORATE-HET2018ES01474

PATIENT
  Age: 62 Year
  Sex: Female

DRUGS (4)
  1. BUDESONIDA [Concomitant]
     Indication: RHINITIS ALLERGIC
     Dosage: UNK
     Route: 065
     Dates: start: 20181101
  2. LEVOFLOXACIN. [Suspect]
     Active Substance: LEVOFLOXACIN
     Indication: ACUTE SINUSITIS
     Dosage: 1 DOSAGE FORM, QD
     Route: 048
     Dates: start: 20181101, end: 20181104
  3. ATENOLOL. [Concomitant]
     Active Substance: ATENOLOL
     Indication: HYPERTENSION
     Dosage: 50 MG
     Route: 065
     Dates: start: 20070223
  4. EBASTINA [Concomitant]
     Active Substance: EBASTINE
     Indication: RHINITIS ALLERGIC
     Dosage: 20 MG
     Route: 065
     Dates: start: 20181101

REACTIONS (4)
  - Anaphylactoid reaction [Recovered/Resolved]
  - Dizziness [Recovered/Resolved]
  - Laryngeal oedema [Recovered/Resolved]
  - Vomiting [Recovered/Resolved]

NARRATIVE: CASE EVENT DATE: 20181103
